FAERS Safety Report 4642048-8 (Version None)
Quarter: 2005Q2

REPORT INFORMATION
  Report Type: 
  Country: None (occurrence: None)
  Receive Date: 20050421
  Receipt Date: 20050406
  Transmission Date: 20051028
  Serious: Yes (Other)
  Sender: FDA-Public Use
  Company Number: GBS050417071

PATIENT
  Age: 53 Year
  Sex: Female

DRUGS (2)
  1. OLANZAPINE [Suspect]
     Indication: DEPRESSION
     Dosage: 20 MG DAY
     Route: 048
     Dates: start: 20040101
  2. SERTRALINE HCL [Concomitant]

REACTIONS (6)
  - CARDIAC VALVE DISEASE [None]
  - HEART RATE INCREASED [None]
  - HYPOTENSION [None]
  - LETHARGY [None]
  - LOSS OF CONSCIOUSNESS [None]
  - SOMNOLENCE [None]
